FAERS Safety Report 22134400 (Version 1)
Quarter: 2023Q1

REPORT INFORMATION
  Report Type: Spontaneous
  Country: ZA (occurrence: ZA)
  Receive Date: 20230324
  Receipt Date: 20230324
  Transmission Date: 20230418
  Serious: Yes (Death, Other)
  Sender: FDA-Public Use
  Company Number: ZA-LUPIN PHARMACEUTICALS INC.-2023-02364

PATIENT

DRUGS (2)
  1. VORICONAZOLE [Suspect]
     Active Substance: VORICONAZOLE
     Indication: Product used for unknown indication
     Dosage: 150 MILLIGRAM, BID (INTRAVENOUS, POWDER FOR SOLUTION FOR INFUSION)
     Route: 065
  2. VORICONAZOLE [Suspect]
     Active Substance: VORICONAZOLE
     Dosage: 3.3 MILLIGRAM/KILOGRAM, QD (INTRAVENOUS, POWDER FOR SOLUTION FOR INFUSION)
     Route: 065

REACTIONS (2)
  - Adverse event [Fatal]
  - Drug level increased [Unknown]
